FAERS Safety Report 10144074 (Version 1)
Quarter: 2014Q2

REPORT INFORMATION
  Report Type: Spontaneous
  Country: US (occurrence: US)
  Receive Date: 20140430
  Receipt Date: 20140430
  Transmission Date: 20141212
  Serious: Yes (Hospitalization, Other)
  Sender: FDA-Public Use
  Company Number: US-PFIZER INC-2014116593

PATIENT
  Age: 13 Year
  Sex: Female
  Weight: 94.3 kg

DRUGS (1)
  1. GENOTROPIN [Suspect]
     Indication: PRADER-WILLI SYNDROME
     Dosage: 2 MG, 1X/DAY
     Dates: start: 2003

REACTIONS (5)
  - Spinal cord injury [Unknown]
  - Paralysis [Unknown]
  - Hypertension [Unknown]
  - Blood glucose increased [Unknown]
  - Incorrect dose administered [Unknown]
